FAERS Safety Report 4331375-X (Version None)
Quarter: 2004Q1

REPORT INFORMATION
  Report Type: 
  Country: None (occurrence: None)
  Receive Date: 20040329
  Receipt Date: 20040317
  Transmission Date: 20041129
  Serious: Yes (Hospitalization)
  Sender: FDA-Public Use
  Company Number: US069804

PATIENT
  Age: 33 Year
  Sex: Male

DRUGS (4)
  1. ENBREL [Suspect]
     Indication: RHEUMATOID ARTHRITIS
     Dosage: 25 MG, 2 IN 1 WEEKS, SC
     Route: 058
     Dates: start: 20030602, end: 20040316
  2. PREDNISONE [Suspect]
     Dosage: 10 MG, 1 IN 1 DAYS, PO
     Route: 048
     Dates: start: 20020101
  3. VICODIN [Concomitant]
  4. FOLIC ACID [Concomitant]

REACTIONS (3)
  - HYPOTENSION [None]
  - PYREXIA [None]
  - RHEUMATOID ARTHRITIS [None]
